FAERS Safety Report 8401204-3 (Version None)
Quarter: 2012Q2

REPORT INFORMATION
  Report Type: 
  Country: None (occurrence: None)
  Receive Date: 20120525
  Receipt Date: 20120514
  Transmission Date: 20120825
  Serious: Yes (Life-Threatening)
  Sender: FDA-Public Use
  Company Number: JP-2012-15230

PATIENT
  Age: 67 Year
  Sex: Male

DRUGS (4)
  1. LASIX [Concomitant]
  2. SAMSCA [Suspect]
     Dosage: 15 MG MILLIGRAM(S), QD, ORAL
     Route: 048
     Dates: start: 20120511, end: 20120513
  3. ALDACTONE [Concomitant]
  4. HANP (CARPERITIDE) INRSCTION [Concomitant]

REACTIONS (1)
  - HYPERNATRAEMIA [None]
